FAERS Safety Report 6890477-4 (Version None)
Quarter: 2010Q3

REPORT INFORMATION
  Report Type: 
  Country: None (occurrence: None)
  Receive Date: 20100731
  Receipt Date: 20081103
  Transmission Date: 20110219
  Serious: No
  Sender: FDA-Public Use
  Company Number: US-PFIZER INC-2008093480

PATIENT
  Sex: Male
  Weight: 90.72 kg

DRUGS (1)
  1. LIPITOR [Suspect]
     Indication: BLOOD CHOLESTEROL INCREASED
     Dates: start: 20070301, end: 20081001

REACTIONS (3)
  - LIVER FUNCTION TEST ABNORMAL [None]
  - MUSCLE ENZYME INCREASED [None]
  - WRONG TECHNIQUE IN DRUG USAGE PROCESS [None]
